FAERS Safety Report 8008613-5 (Version None)
Quarter: 2011Q4

REPORT INFORMATION
  Report Type: 
  Country: None (occurrence: None)
  Receive Date: 20111227
  Receipt Date: 20111212
  Transmission Date: 20120403
  Serious: Yes (Hospitalization)
  Sender: FDA-Public Use
  Company Number: PT-ARROW GEN-2011-21871

PATIENT
  Age: 70 Year
  Sex: Female

DRUGS (3)
  1. SIMVASTATIN [Suspect]
     Indication: HYPERCHOLESTEROLAEMIA
     Dosage: UNK
     Route: 065
  2. KETOCONAZOLE [Suspect]
     Indication: SKIN LESION
     Dosage: UNK
     Route: 065
  3. CYCLOSPORINE [Suspect]
     Indication: SKIN LESION
     Dosage: UNK
     Route: 065

REACTIONS (7)
  - DRUG INTERACTION [None]
  - NEUROTOXICITY [None]
  - CONVULSION [None]
  - CONFUSIONAL STATE [None]
  - RHABDOMYOLYSIS [None]
  - HEPATOTOXICITY [None]
  - RENAL FAILURE ACUTE [None]
